FAERS Safety Report 21980860 (Version 5)
Quarter: 2023Q1

REPORT INFORMATION
  Report Type: Report from Study
  Country: US (occurrence: US)
  Receive Date: 20230211
  Receipt Date: 20230217
  Transmission Date: 20230418
  Serious: No
  Sender: FDA-Public Use
  Company Number: US-002147023-NVSC2023US030527

PATIENT
  Sex: Female

DRUGS (1)
  1. XIIDRA [Suspect]
     Active Substance: LIFITEGRAST
     Indication: Product used for unknown indication
     Dosage: UNK
     Route: 047

REACTIONS (6)
  - Abnormal sensation in eye [Unknown]
  - Hypertension [Unknown]
  - Ocular discomfort [Unknown]
  - Eye pain [Unknown]
  - Vision blurred [Unknown]
  - Product dose omission issue [Unknown]
